FAERS Safety Report 14314986 (Version 8)
Quarter: 2018Q3

REPORT INFORMATION
  Report Type: Spontaneous
  Country: FR (occurrence: FR)
  Receive Date: 20171221
  Receipt Date: 20180724
  Transmission Date: 20181010
  Serious: Yes (Disabling, Other)
  Sender: FDA-Public Use
  Company Number: PHHY2017FR190775

PATIENT
  Age: 44 Year
  Sex: Male

DRUGS (17)
  1. PREDNISONE. [Suspect]
     Active Substance: PREDNISONE
     Dosage: 1 DF, UNK (CEP)
     Route: 065
  2. VALGANCICLOVIR. [Suspect]
     Active Substance: VALGANCICLOVIR
     Indication: ANTIVIRAL TREATMENT
     Dosage: 900 MG, UNK
     Route: 065
  3. CYCLOPHOSPHAMIDE. [Suspect]
     Active Substance: CYCLOPHOSPHAMIDE
     Dosage: CEP
     Route: 065
  4. CARBOPLATIN. [Suspect]
     Active Substance: CARBOPLATIN
     Dosage: DHAC
     Route: 065
  5. VALGANCICLOVIR. [Suspect]
     Active Substance: VALGANCICLOVIR
     Dosage: 1800 MG, UNK
     Route: 048
  6. BENDAMUSTINE [Suspect]
     Active Substance: BENDAMUSTINE
     Indication: T-CELL LYMPHOMA STAGE IV
     Dosage: 1 DF, UNK
     Route: 065
  7. CARBOPLATIN. [Suspect]
     Active Substance: CARBOPLATIN
     Indication: T-CELL LYMPHOMA STAGE IV
     Dosage: 1 DF, UNK (DHAC)
     Route: 065
  8. DEXAMETHASONE. [Suspect]
     Active Substance: DEXAMETHASONE
     Indication: T-CELL LYMPHOMA STAGE IV
     Dosage: 1 DF, UNK (DHAC)
     Route: 065
  9. ADRIAMYCIN [Suspect]
     Active Substance: DOXORUBICIN HYDROCHLORIDE
     Indication: T-CELL LYMPHOMA STAGE IV
  10. CYCLOPHOSPHAMIDE. [Suspect]
     Active Substance: CYCLOPHOSPHAMIDE
     Indication: T-CELL LYMPHOMA STAGE IV
     Dosage: CHOEP
     Route: 065
  11. PREDNISONE. [Suspect]
     Active Substance: PREDNISONE
     Indication: T-CELL LYMPHOMA STAGE IV
     Dosage: 1 DF, UNK (CHOEP)
     Route: 065
  12. CYTARABINE. [Suspect]
     Active Substance: CYTARABINE
     Indication: T-CELL LYMPHOMA STAGE IV
     Dosage: 1 DF, UNK (DHAC)
     Route: 065
  13. ADRIAMYCIN [Suspect]
     Active Substance: DOXORUBICIN HYDROCHLORIDE
     Indication: PERIPHERAL T-CELL LYMPHOMA UNSPECIFIED STAGE IV
  14. ETOPOSIDE. [Suspect]
     Active Substance: ETOPOSIDE
     Indication: T-CELL LYMPHOMA STAGE IV
     Dosage: 1 DF, UNK (CHOEP)
     Route: 065
  15. BRENTUXIMAB VEDOTIN [Suspect]
     Active Substance: BRENTUXIMAB VEDOTIN
     Indication: T-CELL LYMPHOMA STAGE IV
     Dosage: 1 DF, 2 WEEKS AFTER THE 2ND CYCLE
     Route: 042
  16. VINCRISTINE [Suspect]
     Active Substance: VINCRISTINE
     Indication: T-CELL LYMPHOMA STAGE IV
     Dosage: 1 DF, UNK (CHOEP)
     Route: 065
  17. ADRIAMYCIN [Suspect]
     Active Substance: DOXORUBICIN HYDROCHLORIDE
     Dosage: 1 DF, UNK (CHOEP)
     Route: 065

REACTIONS (13)
  - Pneumonia [Unknown]
  - Septic shock [Unknown]
  - Gamma-glutamyltransferase increased [Unknown]
  - Drug ineffective [Unknown]
  - Hepatitis viral [Unknown]
  - Malignant neoplasm progression [Unknown]
  - Dyspnoea [Unknown]
  - Alanine aminotransferase increased [Unknown]
  - Cytomegalovirus chorioretinitis [Not Recovered/Not Resolved]
  - Cytomegalovirus infection [Recovering/Resolving]
  - Blindness [Not Recovered/Not Resolved]
  - Pyrexia [Unknown]
  - T-cell lymphoma stage IV [Unknown]
